FAERS Safety Report 13155081 (Version 2)
Quarter: 2017Q1

REPORT INFORMATION
  Report Type: Spontaneous
  Country: JP (occurrence: JP)
  Receive Date: 20170126
  Receipt Date: 20170209
  Transmission Date: 20170428
  Serious: Yes (Death, Life-Threatening, Hospitalization, Other)
  Sender: FDA-Public Use
  Company Number: JP-ELI_LILLY_AND_COMPANY-JP201611008941

PATIENT
  Age: 59 Year
  Sex: Male
  Weight: 54 kg

DRUGS (7)
  1. CYRAMZA [Suspect]
     Active Substance: RAMUCIRUMAB
     Indication: LUNG SQUAMOUS CELL CARCINOMA RECURRENT
     Dosage: 530 MG, EVERY 4 WEEKS
     Route: 042
     Dates: start: 20161019, end: 20161116
  2. DOCETAXEL. [Concomitant]
     Active Substance: DOCETAXEL
     Indication: LUNG SQUAMOUS CELL CARCINOMA RECURRENT
     Dosage: 80 MG, EVERY 4 WEEKS
     Route: 042
     Dates: start: 20161019, end: 201611
  3. LIXIANA [Concomitant]
     Active Substance: EDOXABAN TOSILATE MONOHYDRATE
     Dosage: UNK
     Route: 048
  4. NAIXAN                             /00256201/ [Concomitant]
     Active Substance: NAPROXEN
     Indication: TUMOUR ASSOCIATED FEVER
     Dosage: UNK
     Route: 048
     Dates: start: 20160921
  5. BAYASPIRIN [Concomitant]
     Active Substance: ASPIRIN
     Dosage: UNK
  6. TAKECAB [Concomitant]
     Active Substance: VONOPRAZAN FUMURATE
     Indication: ABDOMINAL PAIN UPPER
     Dosage: UNK
     Dates: start: 20161025
  7. LIXIANA [Concomitant]
     Active Substance: EDOXABAN TOSILATE MONOHYDRATE
     Indication: DEEP VEIN THROMBOSIS
     Dosage: UNK
     Dates: start: 201606

REACTIONS (8)
  - Impaired healing [Unknown]
  - Gastric ulcer [Unknown]
  - Malignant neoplasm progression [Fatal]
  - Cholecystitis [Unknown]
  - Febrile neutropenia [Recovered/Resolved]
  - Pancytopenia [Recovered/Resolved]
  - Peritonitis [Fatal]
  - Gastric perforation [Fatal]

NARRATIVE: CASE EVENT DATE: 20161027
